FAERS Safety Report 15938224 (Version 1)
Quarter: 2019Q1

REPORT INFORMATION
  Report Type: Spontaneous
  Country: US (occurrence: US)
  Receive Date: 20190208
  Receipt Date: 20190208
  Transmission Date: 20190417
  Serious: No
  Sender: FDA-Public Use
  Company Number: US-ROCHE-2191230

PATIENT
  Age: 48 Year
  Sex: Female
  Weight: 109.87 kg

DRUGS (6)
  1. XOLAIR [Suspect]
     Active Substance: OMALIZUMAB
     Indication: ASTHMA
     Dosage: ONGOING:YES
     Route: 058
  2. FLUVIRIN (UNITED STATES) [Concomitant]
     Dosage: ONGOING:UNKNOWN
     Route: 030
     Dates: start: 20180111
  3. ALLEGRA ALLERGY [Concomitant]
     Active Substance: FEXOFENADINE HYDROCHLORIDE
     Dosage: ONGOING:UNKNOWN
     Route: 048
     Dates: start: 20180111
  4. PROAIR HFA [Concomitant]
     Active Substance: ALBUTEROL SULFATE
     Dosage: ONGOING:UNKNOWN
     Route: 065
     Dates: start: 20180111
  5. SPIRIVA [Concomitant]
     Active Substance: TIOTROPIUM BROMIDE MONOHYDRATE
     Dosage: ONGOING:UNKNOWN
     Route: 065
     Dates: start: 20180726
  6. ALBUTEROL SULFATE. [Concomitant]
     Active Substance: ALBUTEROL SULFATE
     Dosage: ONGOING: UNKNOWN
     Route: 065
     Dates: start: 20180111

REACTIONS (1)
  - Sinusitis [Unknown]

NARRATIVE: CASE EVENT DATE: 20180925
